FAERS Safety Report 12773610 (Version 1)
Quarter: 2016Q3

REPORT INFORMATION
  Report Type: Report from Study
  Country: CA (occurrence: CA)
  Receive Date: 20160923
  Receipt Date: 20160923
  Transmission Date: 20161109
  Serious: Yes (Other)
  Sender: FDA-Public Use
  Company Number: CA-AMGEN-CANSL2016125741

PATIENT
  Sex: Female

DRUGS (5)
  1. ASA [Concomitant]
     Active Substance: ASPIRIN
  2. PANTOPRAZOLE [Concomitant]
     Active Substance: PANTOPRAZOLE SODIUM
     Indication: GASTROOESOPHAGEAL REFLUX DISEASE
  3. PROLIA [Suspect]
     Active Substance: DENOSUMAB
     Indication: PRODUCT USED FOR UNKNOWN INDICATION
     Dosage: UNK
     Route: 065
     Dates: start: 20140604
  4. ELTROXIN [Concomitant]
     Active Substance: LEVOTHYROXINE
  5. ATORVASTIN [Concomitant]
     Active Substance: ATORVASTATIN
     Dosage: 10 MG, UNK

REACTIONS (4)
  - Gastrointestinal bacterial infection [Unknown]
  - Malaise [Recovered/Resolved]
  - Feeling abnormal [Unknown]
  - Constipation [Recovered/Resolved]
